FAERS Safety Report 6842553-X (Version None)
Quarter: 2010Q3

REPORT INFORMATION
  Report Type: 
  Country: None (occurrence: None)
  Receive Date: 20100714
  Receipt Date: 20070727
  Transmission Date: 20110219
  Serious: No
  Sender: FDA-Public Use
  Company Number: US-PFIZER INC-2007064358

PATIENT
  Sex: Female
  Weight: 90.9 kg

DRUGS (5)
  1. CHANTIX [Suspect]
     Indication: SMOKING CESSATION THERAPY
     Route: 048
     Dates: start: 20070601
  2. MORPHINE [Suspect]
     Indication: PAIN
  3. HYDROCODONE [Suspect]
     Indication: PAIN
  4. MULTI-VITAMINS [Concomitant]
  5. ANTIBIOTICS [Concomitant]
     Route: 042

REACTIONS (2)
  - NAUSEA [None]
  - VOMITING [None]
